FAERS Safety Report 12874643 (Version 2)
Quarter: 2016Q4

REPORT INFORMATION
  Report Type: Spontaneous
  Country: US (occurrence: US)
  Receive Date: 20161021
  Receipt Date: 20161201
  Transmission Date: 20170207
  Serious: Yes (Hospitalization)
  Sender: FDA-Public Use
  Company Number: US-ASTRAZENECA-2016SF08524

PATIENT
  Sex: Female

DRUGS (1)
  1. SYMBICORT [Suspect]
     Active Substance: BUDESONIDE\FORMOTEROL FUMARATE DIHYDRATE
     Dosage: 80/4.5 MCG, 2 INHALATIONS TWICE A DAY
     Route: 055

REACTIONS (7)
  - Device malfunction [Unknown]
  - Drug dose omission [Unknown]
  - Product use issue [Unknown]
  - Off label use [Recovered/Resolved]
  - Intentional product misuse [Unknown]
  - Pneumonia [Unknown]
  - Visual acuity reduced [Unknown]

NARRATIVE: CASE EVENT DATE: 20160613
